FAERS Safety Report 18379170 (Version 1)
Quarter: 2020Q4

REPORT INFORMATION
  Report Type: Spontaneous
  Country: US (occurrence: US)
  Receive Date: 20201013
  Receipt Date: 20201013
  Transmission Date: 20210114
  Serious: No
  Sender: FDA-Public Use
  Company Number: US-AMGEN-USASP2020162487

PATIENT
  Sex: Female

DRUGS (3)
  1. NAPROXIN [NAPROXEN] [Concomitant]
     Dosage: UNK
  2. OTEZLA [Suspect]
     Active Substance: APREMILAST
     Indication: PSORIASIS
     Dosage: 30 MILLIGRAM, BID
     Route: 048
     Dates: start: 20180927
  3. PREMARIN [Concomitant]
     Active Substance: ESTROGENS, CONJUGATED
     Dosage: UNK

REACTIONS (2)
  - Psoriasis [Not Recovered/Not Resolved]
  - Pain in extremity [Not Recovered/Not Resolved]
